FAERS Safety Report 4998548-4 (Version None)
Quarter: 2006Q2

REPORT INFORMATION
  Report Type: 
  Country: None (occurrence: None)
  Receive Date: 20060508
  Receipt Date: 20060425
  Transmission Date: 20061013
  Serious: Yes (Hospitalization)
  Sender: FDA-Public Use
  Company Number: HQWYE990025APR06

PATIENT
  Age: 25 Year
  Sex: Female

DRUGS (1)
  1. EFFEXOR [Suspect]
     Indication: OVERDOSE
     Dosage: APPROXIMATELY 30, 150 MG TABLETS (4.5 G) ORAL
     Route: 048

REACTIONS (16)
  - ALANINE AMINOTRANSFERASE INCREASED [None]
  - ASPARTATE AMINOTRANSFERASE INCREASED [None]
  - BODY TEMPERATURE DECREASED [None]
  - BUNDLE BRANCH BLOCK [None]
  - CARDIOTOXICITY [None]
  - CONVULSION [None]
  - DRUG TOXICITY [None]
  - ELECTROCARDIOGRAM QT CORRECTED INTERVAL PROLONGED [None]
  - HYPERREFLEXIA [None]
  - INTENTIONAL OVERDOSE [None]
  - MYDRIASIS [None]
  - MYOPATHY TOXIC [None]
  - RHABDOMYOLYSIS [None]
  - SINUS TACHYCARDIA [None]
  - STUPOR [None]
  - SUICIDE ATTEMPT [None]
